FAERS Safety Report 5741908-4 (Version None)
Quarter: 2008Q2

REPORT INFORMATION
  Report Type: 
  Country: None (occurrence: None)
  Receive Date: 20080515
  Receipt Date: 20080505
  Transmission Date: 20081010
  Serious: Yes (Death, Other)
  Sender: FDA-Public Use
  Company Number: OSCN-PR-0708L-0338

PATIENT
  Age: 68 Year
  Sex: Male

DRUGS (1)
  1. OMNISCAN [Suspect]
     Indication: DRUG USE FOR UNKNOWN INDICATION
     Dosage: 40 ML, SINGLE DOSE, I.V.
     Route: 042

REACTIONS (10)
  - BLOOD ALBUMIN DECREASED [None]
  - BLOOD IRON INCREASED [None]
  - DIALYSIS [None]
  - HYPOTENSION [None]
  - INFLAMMATION [None]
  - IRON BINDING CAPACITY TOTAL DECREASED [None]
  - NEPHROGENIC SYSTEMIC FIBROSIS [None]
  - RENAL INJURY [None]
  - SERUM FERRITIN INCREASED [None]
  - TRANSFERRIN SATURATION INCREASED [None]
